FAERS Safety Report 7430026-5 (Version None)
Quarter: 2011Q2

REPORT INFORMATION
  Report Type: 
  Country: None (occurrence: None)
  Receive Date: 20110421
  Receipt Date: 20110420
  Transmission Date: 20111010
  Serious: Yes (Hospitalization, Other)
  Sender: FDA-Public Use
  Company Number: IT-SANOFI-AVENTIS-2011SA005642

PATIENT
  Age: 65 Year
  Sex: Male

DRUGS (9)
  1. COUMADIN [Concomitant]
     Route: 048
     Dates: start: 20090101, end: 20110115
  2. TRIMETAZIDINE HYDROCHLORIDE [Concomitant]
     Route: 048
     Dates: start: 20090101, end: 20110115
  3. MULTAQ [Suspect]
     Indication: ATRIAL FIBRILLATION
     Route: 048
     Dates: start: 20101215, end: 20110113
  4. SIMVASTATIN [Concomitant]
     Route: 048
     Dates: start: 20090101, end: 20110115
  5. AMIODARONE [Concomitant]
  6. EUTIROX [Concomitant]
     Indication: HYPOTHYROIDISM
     Route: 048
     Dates: start: 20090101, end: 20110115
  7. FENOFIBRATE [Concomitant]
     Route: 048
     Dates: start: 20090101, end: 20110115
  8. LANOXIN [Concomitant]
     Route: 048
     Dates: start: 20090101, end: 20110115
  9. LASIX [Concomitant]
     Route: 048
     Dates: start: 20090101, end: 20110115

REACTIONS (6)
  - JAUNDICE [None]
  - NAUSEA [None]
  - HEPATIC NECROSIS [None]
  - ASTHENIA [None]
  - GASTROINTESTINAL DISORDER [None]
  - TRANSAMINASES INCREASED [None]
